FAERS Safety Report 11731615 (Version 1)
Quarter: 2015Q4

REPORT INFORMATION
  Report Type: Spontaneous
  Country: US (occurrence: US)
  Receive Date: 20151112
  Receipt Date: 20151112
  Transmission Date: 20160304
  Serious: No
  Sender: FDA-Public Use
  Company Number: US-LUNDBECK-DKLU2005391

PATIENT
  Age: 54 Year
  Sex: Male

DRUGS (1)
  1. NORTHERA [Suspect]
     Active Substance: DROXIDOPA
     Indication: DYSTONIA
     Route: 048
     Dates: start: 20141029

REACTIONS (4)
  - Drug dose omission [Unknown]
  - Vomiting [Unknown]
  - Pain [Unknown]
  - Hypotension [Unknown]

NARRATIVE: CASE EVENT DATE: 201510
